FAERS Safety Report 11974012 (Version 1)
Quarter: 2016Q1

REPORT INFORMATION
  Report Type: Spontaneous
  Country: US (occurrence: US)
  Receive Date: 20160128
  Receipt Date: 20160128
  Transmission Date: 20160526
  Serious: No
  Sender: FDA-Public Use
  Company Number: US-ABBVIE-15K-163-1402588-00

PATIENT
  Age: 67 Year
  Sex: Female

DRUGS (1)
  1. HUMIRA [Suspect]
     Active Substance: ADALIMUMAB
     Indication: CROHN^S DISEASE
     Dosage: 3 PEN
     Route: 065
     Dates: start: 20150526, end: 20150526

REACTIONS (2)
  - Device issue [Unknown]
  - Overdose [Unknown]

NARRATIVE: CASE EVENT DATE: 20150526
